FAERS Safety Report 17055490 (Version 1)
Quarter: 2019Q4

REPORT INFORMATION
  Report Type: Spontaneous
  Country: GB (occurrence: GB)
  Receive Date: 20191120
  Receipt Date: 20191120
  Transmission Date: 20200122
  Serious: Yes (Other)
  Sender: FDA-Public Use
  Company Number: GB-ARRAY-2019-06757

PATIENT

DRUGS (3)
  1. MEKTOVI [Suspect]
     Active Substance: BINIMETINIB
     Indication: COLORECTAL CANCER METASTATIC
     Dosage: UNK
  2. BRAFTOVI [Suspect]
     Active Substance: ENCORAFENIB
     Indication: COLORECTAL CANCER METASTATIC
     Dosage: UNK
  3. CETUXIMAB. [Concomitant]
     Active Substance: CETUXIMAB
     Indication: COLORECTAL CANCER METASTATIC
     Dosage: UNK

REACTIONS (3)
  - Rash [Unknown]
  - Product use in unapproved indication [Unknown]
  - Skin fissures [Unknown]
